FAERS Safety Report 15902784 (Version 2)
Quarter: 2019Q4

REPORT INFORMATION
  Report Type: Report from Study
  Country: US (occurrence: US)
  Receive Date: 20190202
  Receipt Date: 20191212
  Transmission Date: 20200122
  Serious: No
  Sender: FDA-Public Use
  Company Number: PHEH2018US055974

PATIENT
  Sex: Female

DRUGS (1)
  1. GILENYA [Suspect]
     Active Substance: FINGOLIMOD HYDROCHLORIDE
     Indication: MULTIPLE SCLEROSIS
     Dosage: 0.5 MG, QD
     Route: 048
     Dates: start: 20150429

REACTIONS (15)
  - Gait disturbance [Unknown]
  - Abdominal pain upper [Unknown]
  - Cognitive disorder [Unknown]
  - Limb discomfort [Unknown]
  - Chills [Unknown]
  - Asthenia [Unknown]
  - Fall [Unknown]
  - Musculoskeletal disorder [Unknown]
  - Diarrhoea [Unknown]
  - Nasopharyngitis [Unknown]
  - Decreased appetite [Unknown]
  - Frequent bowel movements [Unknown]
  - Central nervous system lesion [Unknown]
  - Movement disorder [Unknown]
  - Nausea [Unknown]
